FAERS Safety Report 10152224 (Version 1)
Quarter: 2014Q2

REPORT INFORMATION
  Report Type: Spontaneous
  Country: US (occurrence: None)
  Receive Date: 20140502
  Receipt Date: 20140502
  Transmission Date: 20141212
  Serious: Yes (Other)
  Sender: FDA-Public Use
  Company Number: None

PATIENT
  Age: 68 Year
  Sex: Female
  Weight: 95.26 kg

DRUGS (1)
  1. XARELTO [Suspect]
     Indication: THROMBOSIS
     Dosage: 15MG 1 PILLS, TWICE DAILY, TAKEN BY MOUTH
     Route: 048

REACTIONS (1)
  - Back pain [None]
